FAERS Safety Report 7317582-2 (Version None)
Quarter: 2011Q1

REPORT INFORMATION
  Report Type: 
  Country: None (occurrence: None)
  Receive Date: 20110226
  Receipt Date: 20101118
  Transmission Date: 20110831
  Serious: No
  Sender: FDA-Public Use
  Company Number: US-ALLERGAN-1014975US

PATIENT
  Age: 85 Year
  Sex: Female

DRUGS (1)
  1. BOTOXA? [Suspect]
     Indication: TORTICOLLIS
     Dosage: 2 UNITS, UNK
     Dates: start: 20101105, end: 20101105

REACTIONS (1)
  - DYSPHAGIA [None]
